FAERS Safety Report 17433145 (Version 1)
Quarter: 2020Q1

REPORT INFORMATION
  Report Type: Spontaneous
  Country: GB (occurrence: GB)
  Receive Date: 20200219
  Receipt Date: 20200219
  Transmission Date: 20200409
  Serious: Yes (Death)
  Sender: FDA-Public Use
  Company Number: GB-TEVA-2020-GB-1187861

PATIENT
  Age: 74 Year
  Sex: Male
  Weight: 95.25 kg

DRUGS (1)
  1. DEXAMETHASONE. [Suspect]
     Active Substance: DEXAMETHASONE
     Route: 065

REACTIONS (2)
  - Product label issue [Fatal]
  - Psychotic disorder [Fatal]

NARRATIVE: CASE EVENT DATE: 20191110
